FAERS Safety Report 21293092 (Version 2)
Quarter: 2022Q3

REPORT INFORMATION
  Report Type: Spontaneous
  Country: US (occurrence: US)
  Receive Date: 20220905
  Receipt Date: 20220909
  Transmission Date: 20221027
  Serious: Yes (Congenital Anomaly, Other)
  Sender: FDA-Public Use
  Company Number: US-APOTEX-2022AP012322

PATIENT
  Sex: Male
  Weight: 2.1 kg

DRUGS (1)
  1. DASATINIB [Suspect]
     Active Substance: DASATINIB
     Indication: Philadelphia positive chronic myeloid leukaemia
     Dosage: UNK
     Route: 064

REACTIONS (6)
  - Ventricular septal defect [Unknown]
  - Aorta hypoplasia [Unknown]
  - Bicuspid aortic valve [Unknown]
  - Atrial septal defect [Unknown]
  - Premature baby [Unknown]
  - Maternal exposure during pregnancy [Unknown]
